FAERS Safety Report 25002877 (Version 2)
Quarter: 2025Q1

REPORT INFORMATION
  Report Type: Spontaneous
  Country: US (occurrence: US)
  Receive Date: 20250224
  Receipt Date: 20250320
  Transmission Date: 20250408
  Serious: Yes (Other)
  Sender: SPECGX
  Company Number: US-SPECGX-T202500442

PATIENT
  Sex: Female

DRUGS (5)
  1. ACETAMINOPHEN\HYDROCODONE [Suspect]
     Active Substance: ACETAMINOPHEN\HYDROCODONE
     Indication: Back pain
     Route: 065
     Dates: start: 2023
  2. ACETAMINOPHEN\HYDROCODONE [Suspect]
     Active Substance: ACETAMINOPHEN\HYDROCODONE
     Indication: Migraine
  3. ACETAMINOPHEN\HYDROCODONE [Suspect]
     Active Substance: ACETAMINOPHEN\HYDROCODONE
     Indication: Fibromyalgia
  4. ACETAMINOPHEN\HYDROCODONE [Suspect]
     Active Substance: ACETAMINOPHEN\HYDROCODONE
     Indication: Pain in extremity
  5. VITAMINS NOS [Concomitant]
     Active Substance: VITAMINS
     Indication: Product used for unknown indication
     Route: 065

REACTIONS (10)
  - Oxygen saturation decreased [Unknown]
  - Bradycardia [Unknown]
  - Dyspnoea [Unknown]
  - Cardiac disorder [Unknown]
  - Heart rate irregular [Unknown]
  - Illness [Unknown]
  - Abdominal discomfort [Unknown]
  - Blood cholesterol increased [Unknown]
  - Oxygen saturation abnormal [Unknown]
  - Headache [Unknown]

NARRATIVE: CASE EVENT DATE: 20230101
